FAERS Safety Report 7949693-2 (Version None)
Quarter: 2011Q4

REPORT INFORMATION
  Report Type: 
  Country: None (occurrence: None)
  Receive Date: 20111130
  Receipt Date: 20111122
  Transmission Date: 20120403
  Serious: Yes (Hospitalization)
  Sender: FDA-Public Use
  Company Number: US-BAYER-201030392NA

PATIENT
  Age: 29 Year
  Sex: Female
  Weight: 75 kg

DRUGS (7)
  1. SINGULAIR [Concomitant]
     Indication: RHINITIS ALLERGIC
  2. NSAID'S [Concomitant]
  3. ALLEGRA [Concomitant]
     Indication: RHINITIS ALLERGIC
  4. YAZ [Suspect]
     Indication: CONTRACEPTION
     Dosage: 1 TAB / DAY
     Dates: start: 20090629
  5. MINOCYCLINE HYDROCHLORIDE [Concomitant]
     Indication: ACNE
  6. YASMIN [Suspect]
     Indication: CONTRACEPTION
     Dosage: UNK
     Dates: start: 20050101
  7. ANTIBIOTICS [Concomitant]

REACTIONS (1)
  - DEEP VEIN THROMBOSIS [None]
